FAERS Safety Report 8483225-8 (Version None)
Quarter: 2012Q3

REPORT INFORMATION
  Report Type: 
  Country: None (occurrence: None)
  Receive Date: 20120702
  Receipt Date: 20120618
  Transmission Date: 20120928
  Serious: No
  Sender: FDA-Public Use
  Company Number: US-ASTRAZENECA-2012SE40897

PATIENT
  Age: 70 Year
  Sex: Female
  Weight: 72.6 kg

DRUGS (1)
  1. RHINOCORT [Suspect]
     Indication: UPPER-AIRWAY COUGH SYNDROME
     Route: 045

REACTIONS (5)
  - INTENTIONAL DRUG MISUSE [None]
  - EPISTAXIS [None]
  - NASAL DISCOMFORT [None]
  - COUGH [None]
  - OFF LABEL USE [None]
